FAERS Safety Report 4432015-1 (Version None)
Quarter: 2004Q3

REPORT INFORMATION
  Report Type: 
  Country: None (occurrence: None)
  Receive Date: 20040819
  Receipt Date: 20040809
  Transmission Date: 20050211
  Serious: Yes (Life-Threatening, Other)
  Sender: FDA-Public Use
  Company Number: M2004-1060

PATIENT
  Age: 30 Year
  Sex: Female
  Weight: 75 kg

DRUGS (6)
  1. METRONIDAZOLE [Suspect]
     Indication: PELVIC INFLAMMATORY DISEASE
     Dates: start: 20040501, end: 20040507
  2. OFLOXACIN [Suspect]
     Indication: PELVIC INFLAMMATORY DISEASE
     Dates: start: 20040501, end: 20040507
  3. SENNA [Concomitant]
  4. FLUOXETINE [Concomitant]
  5. MEFENAMIC ACID [Concomitant]
  6. FUSIDIC ACID [Concomitant]

REACTIONS (5)
  - ANAPHYLACTIC REACTION [None]
  - DYSPHAGIA [None]
  - HEADACHE [None]
  - PHARYNGOLARYNGEAL PAIN [None]
  - RASH MACULAR [None]
